FAERS Safety Report 8468467-X (Version None)
Quarter: 2012Q2

REPORT INFORMATION
  Report Type: 
  Country: None (occurrence: None)
  Receive Date: 20120626
  Receipt Date: 20120613
  Transmission Date: 20120825
  Serious: No
  Sender: FDA-Public Use
  Company Number: US-ASTRAZENECA-2012SE29005

PATIENT
  Age: 17 Year
  Sex: Male
  Weight: 102.1 kg

DRUGS (5)
  1. PEPCID [Concomitant]
  2. PREVACID [Concomitant]
  3. ZANTAC [Concomitant]
  4. NEXIUM [Suspect]
     Indication: GASTROOESOPHAGEAL REFLUX DISEASE
     Route: 048
     Dates: start: 20120425
  5. OMEPRAZOLE [Suspect]
     Route: 048

REACTIONS (6)
  - HIATUS HERNIA [None]
  - OESOPHAGITIS [None]
  - DRUG DOSE OMISSION [None]
  - VOMITING [None]
  - WEIGHT DECREASED [None]
  - DRUG INEFFECTIVE [None]
